FAERS Safety Report 5936789-X (Version None)
Quarter: 2008Q4

REPORT INFORMATION
  Report Type: 
  Country: None (occurrence: None)
  Receive Date: 20081029
  Receipt Date: 20081020
  Transmission Date: 20090506
  Serious: Yes (Hospitalization)
  Sender: FDA-Public Use
  Company Number: 16521

PATIENT
  Age: 45 Year
  Sex: Female

DRUGS (8)
  1. POTASSIUM CHLORIDE [Suspect]
     Indication: HYPOKALAEMIA
  2. ERYTHROMYCIN [Concomitant]
  3. PRILOSEC OTC [Concomitant]
  4. LORAZEPAM [Concomitant]
  5. SEROQUEL [Concomitant]
  6. MECLIZINE [Concomitant]
  7. FUROSEMIDE [Concomitant]
  8. HYDROCODONE [Concomitant]

REACTIONS (3)
  - COMA [None]
  - CONVULSION [None]
  - DRUG INTERACTION [None]
